FAERS Safety Report 7788203-X (Version None)
Quarter: 2011Q3

REPORT INFORMATION
  Report Type: 
  Country: None (occurrence: None)
  Receive Date: 20110930
  Receipt Date: 20110920
  Transmission Date: 20111222
  Serious: Yes (Hospitalization)
  Sender: FDA-Public Use
  Company Number: DK-JNJFOC-20110907822

PATIENT
  Sex: Male
  Weight: 67 kg

DRUGS (24)
  1. NEUPOGEN [Suspect]
     Route: 058
     Dates: start: 20110519
  2. NEUPOGEN [Suspect]
     Route: 058
     Dates: start: 20110414
  3. PREDNISONE [Suspect]
     Indication: DIFFUSE LARGE B-CELL LYMPHOMA
     Route: 048
     Dates: start: 20110604
  4. CYCLOPHOSPHAMIDE [Suspect]
     Route: 042
     Dates: start: 20110516
  5. RITUXIMAB [Suspect]
     Indication: DIFFUSE LARGE B-CELL LYMPHOMA
     Dosage: RECEIVED 3 EXTRA
     Route: 042
     Dates: start: 20110418
  6. RITUXIMAB [Suspect]
     Route: 042
     Dates: start: 20110530
  7. VINCRISTINE [Suspect]
     Indication: DIFFUSE LARGE B-CELL LYMPHOMA
     Route: 042
     Dates: start: 20110311
  8. CYCLOPHOSPHAMIDE [Suspect]
     Indication: DIFFUSE LARGE B-CELL LYMPHOMA
     Route: 042
     Dates: start: 20110311
  9. PREDNISONE [Suspect]
     Route: 048
     Dates: start: 20110411
  10. RITUXIMAB [Suspect]
     Route: 042
     Dates: start: 20110516
  11. RITUXIMAB [Suspect]
     Route: 042
     Dates: start: 20110411
  12. RITUXIMAB [Suspect]
     Route: 042
     Dates: start: 20110311
  13. DOXORUBICIN HYDROCHLORIDE [Suspect]
     Indication: DIFFUSE LARGE B-CELL LYMPHOMA
     Route: 042
     Dates: start: 20110311
  14. DOXORUBICIN HYDROCHLORIDE [Suspect]
     Route: 042
     Dates: start: 20110411
  15. CYCLOPHOSPHAMIDE [Suspect]
     Route: 042
     Dates: start: 20110411
  16. PREDNISONE [Suspect]
     Route: 048
     Dates: start: 20110311
  17. PREDNISONE [Suspect]
     Route: 048
     Dates: start: 20110516
  18. SULFAMETHOXAZOL [Concomitant]
     Indication: INFECTION PROPHYLAXIS
     Route: 048
     Dates: start: 20110313, end: 20110605
  19. NEUPOGEN [Suspect]
     Indication: DIFFUSE LARGE B-CELL LYMPHOMA
     Route: 058
     Dates: start: 20110602
  20. DOXORUBICIN HYDROCHLORIDE [Suspect]
     Route: 042
     Dates: start: 20110530
  21. CYCLOPHOSPHAMIDE [Suspect]
     Route: 042
     Dates: start: 20110530
  22. VINCRISTINE [Suspect]
     Route: 042
     Dates: start: 20110411
  23. DOXORUBICIN HYDROCHLORIDE [Suspect]
     Route: 042
     Dates: start: 20110516
  24. NEUPOGEN [Suspect]
     Route: 058
     Dates: start: 20110314

REACTIONS (4)
  - FEBRILE NEUTROPENIA [None]
  - DIARRHOEA [None]
  - PNEUMONIA [None]
  - GASTRIC ULCER [None]
